FAERS Safety Report 23512675 (Version 1)
Quarter: 2024Q1

REPORT INFORMATION
  Report Type: Spontaneous
  Country: US (occurrence: None)
  Receive Date: 20240210
  Receipt Date: 20240210
  Transmission Date: 20240410
  Serious: Yes (Other)
  Sender: FDA-Public Use
  Company Number: None

PATIENT
  Age: 50 Year
  Sex: Female
  Weight: 83.7 kg

DRUGS (11)
  1. SEMAGLUTIDE [Suspect]
     Active Substance: SEMAGLUTIDE
     Indication: Obesity
     Dosage: OTHER QUANTITY : 20 UNITS;?OTHER FREQUENCY : WEEKLY;?
     Route: 058
     Dates: start: 20230124, end: 20240128
  2. LEXAPRO [Concomitant]
     Active Substance: ESCITALOPRAM OXALATE
  3. ADDERALL [Concomitant]
     Active Substance: AMPHETAMINE ASPARTATE\AMPHETAMINE SULFATE\DEXTROAMPHETAMINE SACCHARATE\DEXTROAMPHETAMINE SULFATE
  4. PANTOPRAZOLE [Concomitant]
     Active Substance: PANTOPRAZOLE
  5. CELECOXIB [Concomitant]
     Active Substance: CELECOXIB
  6. OXYBUTYNIN CHLORIDE [Concomitant]
     Active Substance: OXYBUTYNIN CHLORIDE
  7. AMITRIPTYLINE HYDROCHLORIDE [Concomitant]
     Active Substance: AMITRIPTYLINE HYDROCHLORIDE
  8. NAC [Concomitant]
  9. MethylPro (B complex and L-Methlyfolate) [Concomitant]
  10. OMEGA 3 [Concomitant]
     Active Substance: CAPSAICIN
  11. L-Argenine [Concomitant]

REACTIONS (7)
  - Abdominal pain upper [None]
  - Diarrhoea [None]
  - Product formulation issue [None]
  - Weight decreased [None]
  - Decreased appetite [None]
  - Accidental overdose [None]
  - Product compounding quality issue [None]

NARRATIVE: CASE EVENT DATE: 20240108
